FAERS Safety Report 7066405-8 (Version None)
Quarter: 2010Q4

REPORT INFORMATION
  Report Type: 
  Country: None (occurrence: None)
  Receive Date: 20101027
  Receipt Date: 20091202
  Transmission Date: 20110411
  Serious: Yes (Other)
  Sender: FDA-Public Use
  Company Number: US-WYE-H12434709

PATIENT
  Age: 57 Year
  Sex: Female

DRUGS (1)
  1. PREMPHASE 14/14 [Suspect]
     Dosage: UNKNOWN
     Route: 065

REACTIONS (3)
  - BREAST CANCER [None]
  - DRUG WITHDRAWAL SYNDROME [None]
  - HOT FLUSH [None]
